FAERS Safety Report 22223160 (Version 1)
Quarter: 2023Q2

REPORT INFORMATION
  Report Type: Spontaneous
  Country: US (occurrence: US)
  Receive Date: 20230418
  Receipt Date: 20230418
  Transmission Date: 20230722
  Serious: Yes (Death, Life-Threatening, Other)
  Sender: FDA-Public Use
  Company Number: US-PFIZER INC-202300156334

PATIENT
  Age: 64 Year
  Sex: Male

DRUGS (4)
  1. SULFAMETHOXAZOLE\TRIMETHOPRIM [Suspect]
     Active Substance: SULFAMETHOXAZOLE\TRIMETHOPRIM
     Indication: Central nervous system infection
     Dosage: UNK
  2. MILTEFOSINE [Suspect]
     Active Substance: MILTEFOSINE
     Indication: Central nervous system infection
     Dosage: UNK
  3. POSACONAZOLE [Suspect]
     Active Substance: POSACONAZOLE
     Indication: Central nervous system infection
     Dosage: UNK
  4. AMPHOTERICIN B [Suspect]
     Active Substance: AMPHOTERICIN B
     Indication: Aspergillus infection
     Dosage: UNK

REACTIONS (1)
  - Drug ineffective [Fatal]
